FAERS Safety Report 7553165-7 (Version None)
Quarter: 2011Q2

REPORT INFORMATION
  Report Type: 
  Country: None (occurrence: None)
  Receive Date: 20110617
  Receipt Date: 20110607
  Transmission Date: 20111010
  Serious: Yes (Other)
  Sender: FDA-Public Use
  Company Number: FR-BRISTOL-MYERS SQUIBB COMPANY-15816473

PATIENT
  Age: 29 Year
  Sex: Female

DRUGS (11)
  1. PRIMPERAN TAB [Concomitant]
     Dosage: 1 TABLET THE SAME DAY OF METOJECT INTAKE AND 1 TO 3 TABLETS THE DAY AFTER
  2. FOLIC ACID [Concomitant]
     Dosage: SPECIAFOLDINE (FOLIC ACID) 4 TABLETS A WEEK 48 HOURS AFTER METHOTREXATE
  3. PREDNISONE [Concomitant]
     Dosage: CORTANCYL 10 MG A DAY THEN 7.5 MG A DAY:FROM APRIL TO JULY 2007,10MG THEN 6MG:SEP08-JAN09
  4. KETOPROFEN [Concomitant]
     Dosage: BIPROFENID 100 MG (KETOPROFEN) 1 TABLET A DAY,
  5. ORENCIA [Suspect]
     Indication: POLYARTHRITIS
     Dosage: ALSO TAKEN10 MG/KG EVERY 5 WEEKS
     Route: 042
     Dates: start: 20090727
  6. OROCAL D3 [Concomitant]
     Dosage: 1 TABLET IN THE MORNING AND 1 IN THE EVENING,
  7. OMEPRAZOLE [Concomitant]
  8. METHOTREXATE SODIUM [Suspect]
     Indication: POLYARTHRITIS
     Dosage: APRIL-JULY 2007,THE PATIENT WAS TREATED WITH METHOTREXATE 15 MG A WEEK,DEC2007-SEP08,SEP08-JAN09
     Route: 058
  9. TIMOFEROL [Concomitant]
     Dosage: 1 TABLET IN THE MORNING AND 1 IN THE EVENING
  10. POTASSIUM CHLORIDE [Concomitant]
     Dosage: 1 CAPSULE IN THE MORNING AND 1 IN THE EVENING
  11. ACETAMINOPHEN [Concomitant]
     Indication: PAIN
     Dosage: 2 TABLETS A DAY IF PAIN

REACTIONS (2)
  - EOSINOPHILIA [None]
  - LYMPHOCYTOSIS [None]
